FAERS Safety Report 12276223 (Version 2)
Quarter: 2016Q2

REPORT INFORMATION
  Report Type: Spontaneous
  Country: US (occurrence: US)
  Receive Date: 20160418
  Receipt Date: 20160420
  Transmission Date: 20160815
  Serious: Yes (Other)
  Sender: FDA-Public Use
  Company Number: US-TEVA-651952USA

PATIENT
  Age: 48 Year
  Sex: Female

DRUGS (10)
  1. DACARBAZINE. [Suspect]
     Active Substance: DACARBAZINE
     Route: 065
  2. INTERLEUKIN-2 [Suspect]
     Active Substance: ALDESLEUKIN
     Route: 065
  3. PEMBROLIZUMAB. [Suspect]
     Active Substance: PEMBROLIZUMAB
     Route: 065
     Dates: start: 201409
  4. INTERLEUKIN-2 [Suspect]
     Active Substance: ALDESLEUKIN
     Dosage: 2 CYCLES OF HIGH DOSE
     Route: 065
  5. CISPLATIN. [Suspect]
     Active Substance: CISPLATIN
     Route: 065
  6. INTERLEUKIN-2 [Suspect]
     Active Substance: ALDESLEUKIN
     Dosage: 4 CYCLES OF HIGH DOSE
     Route: 065
     Dates: start: 201404, end: 201407
  7. NIVOLUMAB [Suspect]
     Active Substance: NIVOLUMAB
     Dosage: 1 MG/KG
     Route: 065
  8. INTERFERON [Suspect]
     Active Substance: INTERFERON
     Route: 065
  9. VINBLASTINE [Suspect]
     Active Substance: VINBLASTINE
     Route: 065
  10. IPILIMUMAB [Suspect]
     Active Substance: IPILIMUMAB
     Dosage: 3MG/KG
     Route: 065

REACTIONS (3)
  - Colitis [Recovering/Resolving]
  - Lymphocytic hypophysitis [Recovering/Resolving]
  - Hepatotoxicity [Recovered/Resolved]
